FAERS Safety Report 5724722-5 (Version None)
Quarter: 2008Q2

REPORT INFORMATION
  Report Type: 
  Country: None (occurrence: None)
  Receive Date: 20080430
  Receipt Date: 20080430
  Transmission Date: 20081010
  Serious: Yes (Life-Threatening, Hospitalization)
  Sender: FDA-Public Use
  Company Number: None

PATIENT
  Sex: Male
  Weight: 73 kg

DRUGS (2)
  1. LEFLUNOMIDE [Suspect]
     Indication: RHEUMATOID ARTHRITIS
     Dosage: 20MG DAILY PO
     Route: 048
     Dates: start: 20071001, end: 20080425
  2. PREDNISONE [Suspect]
     Indication: RHEUMATOID ARTHRITIS
     Dosage: 20MG DAILY PO
     Route: 048
     Dates: start: 20071001, end: 20080425

REACTIONS (2)
  - TUBERCULOSIS [None]
  - WEIGHT DECREASED [None]
